FAERS Safety Report 19205104 (Version 2)
Quarter: 2021Q3

REPORT INFORMATION
  Report Type: Spontaneous
  Country: US (occurrence: US)
  Receive Date: 20210503
  Receipt Date: 20210804
  Transmission Date: 20211014
  Serious: Yes (Other)
  Sender: FDA-Public Use
  Company Number: US-JNJFOC-20210451210

PATIENT
  Sex: Male

DRUGS (1)
  1. NEUTROGENA BEACH DEF WATER PLUS SUN PROT BR^D SPECT SPF 70 (AV\HOM\OCTI\OCTO\OX) [Suspect]
     Active Substance: AVOBENZONE\HOMOSALATE\OCTISALATE\OCTOCRYLENE\OXYBENZONE
     Indication: PRODUCT USED FOR UNKNOWN INDICATION
     Route: 061

REACTIONS (2)
  - Product label issue [Unknown]
  - Lung neoplasm malignant [Unknown]
